FAERS Safety Report 19313965 (Version 1)
Quarter: 2021Q2

REPORT INFORMATION
  Report Type: Report from Study
  Country: US (occurrence: US)
  Receive Date: 20210527
  Receipt Date: 20210527
  Transmission Date: 20210717
  Serious: Yes (Death, Hospitalization)
  Sender: FDA-Public Use
  Company Number: US-MYLANLABS-2021M1030659

PATIENT

DRUGS (3)
  1. PREDNISONE. [Suspect]
     Active Substance: PREDNISONE
     Indication: IMMUNE-MEDIATED MYOCARDITIS
     Dosage: 1?2 MG/KG, TAPERING DOSES
     Route: 048
  2. SOLU?MEDROL [Suspect]
     Active Substance: METHYLPREDNISOLONE SODIUM SUCCINATE
     Indication: IMMUNE-MEDIATED MYOCARDITIS
     Dosage: 1 GRAM, QD
     Route: 042
  3. INFLIXIMAB [Suspect]
     Active Substance: INFLIXIMAB
     Indication: IMMUNE-MEDIATED MYOCARDITIS
     Dosage: 5 MILLIGRAM/KILOGRAM
     Route: 065

REACTIONS (2)
  - Drug ineffective [Unknown]
  - Septic shock [Fatal]
